FAERS Safety Report 5558392-6 (Version None)
Quarter: 2007Q4

REPORT INFORMATION
  Report Type: 
  Country: None (occurrence: None)
  Receive Date: 20071130
  Receipt Date: 20070909
  Transmission Date: 20080405
  Serious: No
  Sender: FDA-Public Use
  Company Number: US200709001585

PATIENT
  Age: 60 Year
  Sex: Female
  Weight: 108.8 kg

DRUGS (3)
  1. BYETTA [Suspect]
     Indication: TYPE 2 DIABETES MELLITUS
     Dosage: 5 UG, 2/D, SUBCUTANEOUS
     Route: 058
     Dates: start: 20070908, end: 20070908
  2. . [Concomitant]
  3. GLIPIZIDE XL (GLIPIZIDE) [Concomitant]

REACTIONS (5)
  - FEELING JITTERY [None]
  - HYPERHIDROSIS [None]
  - RESIDUAL URINE [None]
  - STOMACH DISCOMFORT [None]
  - VAGINAL PAIN [None]
